FAERS Safety Report 5373662-2 (Version None)
Quarter: 2007Q2

REPORT INFORMATION
  Report Type: 
  Country: None (occurrence: None)
  Receive Date: 20070615
  Receipt Date: 20060815
  Transmission Date: 20071010
  Serious: Yes (Other)
  Sender: FDA-Public Use
  Company Number: 200518750US

PATIENT
  Age: 47 Year
  Sex: Female

DRUGS (15)
  1. LANTUS [Suspect]
     Indication: DIABETES MELLITUS NON-INSULIN-DEPENDENT
  2. LANTUS [Suspect]
     Indication: DIABETES MELLITUS INSULIN-DEPENDENT
  3. LANTUS [Suspect]
     Indication: DIABETES MELLITUS INSULIN-DEPENDENT
     Dosage: QAM SC
     Route: 058
  4. LANTUS [Suspect]
     Indication: DIABETES MELLITUS INSULIN-DEPENDENT
     Dosage: QAM SC
     Route: 058
  5. LANTUS [Suspect]
     Indication: DIABETES MELLITUS INSULIN-DEPENDENT
     Dosage: 20 7U QAM SC
     Route: 058
  6. INSULIN (HUMALOG /00030501/) [Concomitant]
  7. ATENOLOL [Concomitant]
  8. LAMICTAL [Concomitant]
  9. CLOPIDOGREL (PLAVIX /01220701/) [Concomitant]
  10. ACETYLSALYICYLIC ACID (BABY ASPIRIN) [Concomitant]
  11. SYNTHROID [Concomitant]
  12. VALACICLOVIR HYDROCHLORIDE (VALTREX) [Concomitant]
  13. ISOSORBIDE DINITRATE [Concomitant]
  14. ALTACE [Concomitant]
  15. CORTISONE ACETATE TAB [Concomitant]

REACTIONS (4)
  - BLOOD GLUCOSE INCREASED [None]
  - HUNGER [None]
  - HYPERGLYCAEMIA [None]
  - VISUAL ACUITY REDUCED [None]
